FAERS Safety Report 9833381 (Version 1)
Quarter: 2014Q1

REPORT INFORMATION
  Report Type: Spontaneous
  Country: FR (occurrence: FR)
  Receive Date: 20140121
  Receipt Date: 20140121
  Transmission Date: 20141002
  Serious: Yes (Hospitalization, Other)
  Sender: FDA-Public Use
  Company Number: FR-US-EMD SERONO, INC.-7263028

PATIENT
  Age: 31 Year
  Sex: Male

DRUGS (2)
  1. REBIF [Suspect]
     Indication: PRODUCT USED FOR UNKNOWN INDICATION
     Dates: start: 2007
  2. REBIF [Suspect]
     Dates: start: 201307

REACTIONS (3)
  - Abscess [Recovered/Resolved]
  - Neutrophil count decreased [Recovered/Resolved]
  - Influenza like illness [Recovered/Resolved]
